FAERS Safety Report 9280729 (Version 1)
Quarter: 2013Q2

REPORT INFORMATION
  Report Type: Spontaneous
  Country: US (occurrence: None)
  Receive Date: 20130502
  Receipt Date: 20130502
  Transmission Date: 20140414
  Serious: Yes (Life-Threatening, Other)
  Sender: FDA-Public Use
  Company Number: 001523759A

PATIENT
  Sex: Female

DRUGS (6)
  1. MEANINGFUL BEAUTY SKIN BRIGHTENING DECOLLETE NECK TREATMENT SPF.15 [Suspect]
     Dosage: ONCE DAILY DERMAL
     Dates: start: 20130416
  2. ESTROGEN [Concomitant]
  3. BENADRYL [Concomitant]
  4. ADVIL [Concomitant]
  5. CHOLESTEROL MEDICATION [Concomitant]
  6. EPIPEN [Concomitant]

REACTIONS (3)
  - Swelling face [None]
  - Pruritus [None]
  - Nausea [None]
